FAERS Safety Report 8810122 (Version 1)
Quarter: 2012Q4

REPORT INFORMATION
  Report Type: Report from Study
  Country: US (occurrence: US)
  Receive Date: 20120926
  Receipt Date: 20120926
  Transmission Date: 20130627
  Serious: Yes (Death)
  Sender: FDA-Public Use
  Company Number: US-ROCHE-1039511

PATIENT
  Age: 58 Year
  Sex: Female
  Weight: 81.8 kg

DRUGS (6)
  1. XELODA [Suspect]
     Indication: COLORECTAL CANCER METASTATIC
     Route: 048
     Dates: start: 20110701
  2. RANITIDINE [Concomitant]
  3. METROPOLOL COMP [Concomitant]
  4. IMODIUM [Concomitant]
  5. IRON [Concomitant]
  6. VITAMIN B12 [Concomitant]

REACTIONS (3)
  - Death [Fatal]
  - Dry mouth [Unknown]
  - Diarrhoea [Unknown]
